FAERS Safety Report 10101508 (Version 1)
Quarter: 2014Q2

REPORT INFORMATION
  Report Type: Spontaneous
  Country: IT (occurrence: IT)
  Receive Date: 20140424
  Receipt Date: 20140424
  Transmission Date: 20141212
  Serious: Yes (Other)
  Sender: FDA-Public Use
  Company Number: IT-BAYER-2014-059918

PATIENT
  Age: 68 Year
  Sex: Male

DRUGS (2)
  1. STIVARGA [Suspect]
     Indication: COLON CANCER METASTATIC
     Dosage: UNK
     Route: 048
     Dates: start: 20140227, end: 20140410
  2. STIVARGA [Suspect]
     Indication: COLON CANCER METASTATIC
     Dosage: UNK (DOSE REDUCED BY 25 PERCENT)
     Route: 048
     Dates: start: 2014

REACTIONS (3)
  - Oral fungal infection [Recovered/Resolved with Sequelae]
  - Pyrexia [Recovered/Resolved with Sequelae]
  - Asthenia [Recovered/Resolved with Sequelae]
